FAERS Safety Report 7699477-8 (Version None)
Quarter: 2011Q3

REPORT INFORMATION
  Report Type: 
  Country: None (occurrence: None)
  Receive Date: 20110820
  Receipt Date: 20101208
  Transmission Date: 20111222
  Serious: No
  Sender: FDA-Public Use
  Company Number: US-ALLERGAN-1015948US

PATIENT
  Age: 69 Year
  Sex: Female

DRUGS (1)
  1. SANCTURA XR [Suspect]
     Indication: PRODUCT USED FOR UNKNOWN INDICATION
     Dosage: UNK
     Dates: end: 20101206

REACTIONS (4)
  - SWELLING FACE [None]
  - SKIN DISCOLOURATION [None]
  - CONSTIPATION [None]
  - VISION BLURRED [None]
